FAERS Safety Report 11162241 (Version 1)
Quarter: 2015Q2

REPORT INFORMATION
  Report Type: Spontaneous
  Country: US (occurrence: US)
  Receive Date: 20150604
  Receipt Date: 20150604
  Transmission Date: 20150821
  Serious: No
  Sender: FDA-Public Use
  Company Number: US-SA-2014SA134881

PATIENT
  Sex: Male

DRUGS (4)
  1. VITAMINS [Suspect]
     Active Substance: VITAMINS
     Route: 065
     Dates: start: 201409
  2. METFORMIN [Concomitant]
     Active Substance: METFORMIN HYDROCHLORIDE
  3. SOLOSTAR [Concomitant]
     Active Substance: DEVICE
  4. LANTUS SOLOSTAR [Suspect]
     Active Substance: INSULIN GLARGINE
     Indication: DIABETES MELLITUS
     Dosage: DOSE- 30 TO 40 UNITS ONCE A DAY
     Route: 065

REACTIONS (3)
  - Diarrhoea [Unknown]
  - Blood glucose increased [Unknown]
  - Abdominal discomfort [Unknown]
